FAERS Safety Report 8276974-8 (Version None)
Quarter: 2012Q2

REPORT INFORMATION
  Report Type: 
  Country: None (occurrence: None)
  Receive Date: 20120406
  Receipt Date: 20120330
  Transmission Date: 20120825
  Serious: Yes (Other)
  Sender: FDA-Public Use
  Company Number: 2012SP002423

PATIENT
  Age: 18 Year
  Sex: Female

DRUGS (4)
  1. LAMOTRIGINE [Suspect]
     Indication: PRODUCT USED FOR UNKNOWN INDICATION
     Dosage: UNK;UNK
  2. LORATADINE [Concomitant]
  3. KEPPRA [Suspect]
     Indication: PRODUCT USED FOR UNKNOWN INDICATION
     Dosage: UNK;UNK
  4. NEXPLANON [Suspect]
     Indication: CONTRACEPTION
     Dosage: 68 MG;UNK;SBDE
     Route: 059
     Dates: start: 20110301

REACTIONS (2)
  - CONVULSION [None]
  - DRUG TOLERANCE DECREASED [None]
